FAERS Safety Report 23724778 (Version 1)
Quarter: 2024Q2

REPORT INFORMATION
  Report Type: Spontaneous
  Country: DK (occurrence: DK)
  Receive Date: 20240409
  Receipt Date: 20240409
  Transmission Date: 20240716
  Serious: Yes (Hospitalization, Other)
  Sender: FDA-Public Use
  Company Number: DK-CELLTRION INC.-2024DK008100

PATIENT

DRUGS (4)
  1. INFLIXIMAB [Suspect]
     Active Substance: INFLIXIMAB
     Indication: Product used for unknown indication
     Dosage: UNKNOWN
     Route: 042
  2. IBUPROFEN [Suspect]
     Active Substance: IBUPROFEN
     Indication: Osteoarthritis
     Dosage: UNKNOWN
  3. GLUCOSAMINE SULFATE POTASSIUM CHLORIDE [Suspect]
     Active Substance: GLUCOSAMINE SULFATE POTASSIUM CHLORIDE
     Indication: Product used for unknown indication
     Dosage: 400 MG
     Route: 048
     Dates: start: 2015, end: 20210307
  4. ASPIRIN [Concomitant]
     Active Substance: ASPIRIN

REACTIONS (1)
  - Gastric ulcer haemorrhage [Recovering/Resolving]
